FAERS Safety Report 8943668 (Version 1)
Quarter: 2012Q4

REPORT INFORMATION
  Report Type: 
  Country: RU (occurrence: RU)
  Receive Date: 20121204
  Receipt Date: 20121204
  Transmission Date: 20130627
  Serious: Yes (Life-Threatening, Other)
  Sender: FDA-Public Use
  Company Number: RU-ASTRAZENECA-2012SE89036

PATIENT
  Age: 18627 Day
  Sex: Male

DRUGS (2)
  1. BRILINTA [Suspect]
     Indication: CORONARY ARTERY BYPASS
     Route: 048
  2. BRILINTA [Suspect]
     Indication: CORONARY ARTERY BYPASS
     Route: 048
     Dates: start: 201211, end: 201211

REACTIONS (2)
  - Pericardial haemorrhage [Recovering/Resolving]
  - Off label use [Recovered/Resolved]
